FAERS Safety Report 15868084 (Version 2)
Quarter: 2019Q1

REPORT INFORMATION
  Report Type: Spontaneous
  Country: US (occurrence: US)
  Receive Date: 20190125
  Receipt Date: 20190313
  Transmission Date: 20190417
  Serious: Yes (Other)
  Sender: FDA-Public Use
  Company Number: US-SPARK THERAPEUTICS, INC.-US-SPK-19-00002

PATIENT
  Age: 6 Year
  Sex: Male
  Weight: 25.5 kg

DRUGS (1)
  1. LUXTURNA [Suspect]
     Active Substance: VORETIGENE NEPARVOVEC-RZYL
     Indication: RETINAL DYSTROPHY
     Dosage: IN THE LEFT EYE (OS)
     Route: 031
     Dates: start: 20190109, end: 20190109

REACTIONS (4)
  - Vision blurred [Recovered/Resolved]
  - Retinal tear [Recovered/Resolved with Sequelae]
  - Intraocular pressure increased [Recovering/Resolving]
  - Pyrexia [Recovered/Resolved]

NARRATIVE: CASE EVENT DATE: 20190109
